FAERS Safety Report 17901508 (Version 1)
Quarter: 2020Q2

REPORT INFORMATION
  Report Type: Spontaneous
  Country: AR (occurrence: AR)
  Receive Date: 20200616
  Receipt Date: 20200616
  Transmission Date: 20200714
  Serious: Yes (Hospitalization)
  Sender: FDA-Public Use
  Company Number: AR-PFIZER INC-2020230918

PATIENT
  Age: 64 Year

DRUGS (2)
  1. AXITINIB [Suspect]
     Active Substance: AXITINIB
     Indication: RENAL CANCER METASTATIC
     Dosage: 5 MG, 2X/DAY (EVERY 12 HOURS)
  2. AVELUMAB [Suspect]
     Active Substance: AVELUMAB
     Indication: RENAL CANCER METASTATIC
     Dosage: UNK

REACTIONS (1)
  - Myoclonus [Unknown]

NARRATIVE: CASE EVENT DATE: 20200611
